FAERS Safety Report 18633502 (Version 7)
Quarter: 2021Q2

REPORT INFORMATION
  Report Type: Spontaneous
  Country: CA (occurrence: CA)
  Receive Date: 20201218
  Receipt Date: 20210603
  Transmission Date: 20210717
  Serious: Yes (Death, Other)
  Sender: FDA-Public Use
  Company Number: CA-PFIZER INC-2020251718

PATIENT
  Age: 42 Year
  Sex: Male
  Weight: 84 kg

DRUGS (17)
  1. ZIRABEV [Suspect]
     Active Substance: BEVACIZUMAB-BVZR
     Dosage: 1400 MG, EVERY 3 WEEKS
     Route: 042
     Dates: start: 20210211
  2. ZIRABEV [Suspect]
     Active Substance: BEVACIZUMAB-BVZR
     Dosage: 1400 MG, EVERY 3 WEEKS
     Route: 042
     Dates: start: 20200714, end: 20200714
  3. ZIRABEV [Suspect]
     Active Substance: BEVACIZUMAB-BVZR
     Dosage: 1400 MG, EVERY 3 WEEKS
     Route: 042
     Dates: start: 20200804
  4. ZIRABEV [Suspect]
     Active Substance: BEVACIZUMAB-BVZR
     Dosage: 1400 MG, EVERY 3 WEEKS
     Route: 042
     Dates: start: 20200915
  5. ZIRABEV [Suspect]
     Active Substance: BEVACIZUMAB-BVZR
     Dosage: 1400 MG, EVERY 3 WEEKS
     Route: 042
     Dates: start: 20201210
  6. LOMUSTINE. [Concomitant]
     Active Substance: LOMUSTINE
     Dosage: UNK
  7. DEXAMETHASONE. [Concomitant]
     Active Substance: DEXAMETHASONE
     Dosage: UNK
  8. ZIRABEV [Suspect]
     Active Substance: BEVACIZUMAB-BVZR
     Dosage: 1400 MG, EVERY 3 WEEKS
     Route: 042
     Dates: start: 20200825
  9. ZIRABEV [Suspect]
     Active Substance: BEVACIZUMAB-BVZR
     Dosage: 1400 MG, EVERY 3 WEEKS
     Route: 042
     Dates: start: 20200825
  10. ZIRABEV [Suspect]
     Active Substance: BEVACIZUMAB-BVZR
     Dosage: 1400 MG, EVERY 3 WEEKS
     Route: 042
     Dates: start: 20200714
  11. ZIRABEV [Suspect]
     Active Substance: BEVACIZUMAB-BVZR
     Dosage: 1400 MG, EVERY 3 WEEKS
     Route: 042
     Dates: start: 20200915
  12. ZIRABEV [Suspect]
     Active Substance: BEVACIZUMAB-BVZR
     Dosage: 1400 MG, EVERY 3 WEEKS
     Route: 042
     Dates: start: 20201117
  13. ZIRABEV [Suspect]
     Active Substance: BEVACIZUMAB-BVZR
     Dosage: 1400 MG, EVERY 3 WEEKS
     Route: 042
     Dates: start: 20210115
  14. ZIRABEV [Suspect]
     Active Substance: BEVACIZUMAB-BVZR
     Indication: GLIOBLASTOMA
     Dosage: 1400 MG, EVERY 3 WEEKS
     Route: 042
     Dates: start: 20200714, end: 20200714
  15. ZIRABEV [Suspect]
     Active Substance: BEVACIZUMAB-BVZR
     Dosage: 1400 MG, EVERY 3 WEEKS
     Route: 042
     Dates: start: 20200714
  16. ZIRABEV [Suspect]
     Active Substance: BEVACIZUMAB-BVZR
     Dosage: 1400 MG, EVERY 3 WEEKS
     Route: 042
     Dates: start: 20201210
  17. ZIRABEV [Suspect]
     Active Substance: BEVACIZUMAB-BVZR
     Dosage: 1400 MG, EVERY 3 WEEKS
     Route: 042
     Dates: start: 20210211

REACTIONS (15)
  - Red blood cell count decreased [Unknown]
  - Granulocyte count increased [Unknown]
  - Death [Fatal]
  - Product use issue [Unknown]
  - Weight increased [Not Recovered/Not Resolved]
  - Mean cell haemoglobin increased [Unknown]
  - Red cell distribution width increased [Unknown]
  - Off label use [Unknown]
  - Seizure [Recovered/Resolved]
  - Blood pressure fluctuation [Unknown]
  - Blood pressure diastolic increased [Not Recovered/Not Resolved]
  - Heart rate decreased [Unknown]
  - Body temperature decreased [Not Recovered/Not Resolved]
  - Malaise [Unknown]
  - Platelet count decreased [Unknown]

NARRATIVE: CASE EVENT DATE: 2020
